FAERS Safety Report 6442287-X (Version None)
Quarter: 2009Q4

REPORT INFORMATION
  Report Type: 
  Country: None (occurrence: None)
  Receive Date: 20091116
  Receipt Date: 20091111
  Transmission Date: 20100525
  Serious: Yes (Hospitalization)
  Sender: FDA-Public Use
  Company Number: US-GENENTECH-294062

PATIENT
  Sex: Female
  Weight: 69.751 kg

DRUGS (3)
  1. BEVACIZUMAB [Suspect]
     Indication: LUNG NEOPLASM MALIGNANT
     Dosage: 15 MG/KG, UNK
     Dates: start: 20091012
  2. TAXOTERE [Suspect]
     Dosage: 60 MG/M2, UNK
     Dates: start: 20091012
  3. CARBOPLATIN [Suspect]
     Dosage: 5 AUC, UNK
     Dates: start: 20091012

REACTIONS (2)
  - ATRIAL FIBRILLATION [None]
  - DYSPNOEA [None]
